FAERS Safety Report 4330253-X (Version None)
Quarter: 2004Q1

REPORT INFORMATION
  Report Type: 
  Country: None (occurrence: None)
  Receive Date: 20040329
  Receipt Date: 20040305
  Transmission Date: 20041129
  Serious: Yes (Death, Hospitalization)
  Sender: FDA-Public Use
  Company Number: M2004.0173

PATIENT
  Age: 89 Year
  Sex: Male

DRUGS (6)
  1. FUROSEMIDE TABLETS, UNKNOWN MANUFACTURER [Suspect]
     Indication: CARDIAC DISORDER
     Dosage: 120MG PO QD
     Route: 048
  2. FUROSEMIDE TABLETS, UNKNOWN MANUFACTURER [Suspect]
     Indication: CARDIAC FAILURE
     Dosage: 120MG PO QD
     Route: 048
  3. CEFADROXIL CAPSULES, UNKNOWN MANUFACTURER [Suspect]
     Indication: INFECTION
     Dosage: 1 G PO QD
     Dates: start: 20031112, end: 20031122
  4. TIMOLOL MALEATE [Concomitant]
  5. POTASSIUM CHLORIDE [Concomitant]
  6. ASPIRIN [Concomitant]

REACTIONS (5)
  - CARDIAC FAILURE [None]
  - CONDITION AGGRAVATED [None]
  - PYREXIA [None]
  - RESPIRATORY DISORDER [None]
  - TOXIC SKIN ERUPTION [None]
